FAERS Safety Report 7361301-0 (Version None)
Quarter: 2011Q1

REPORT INFORMATION
  Report Type: 
  Country: None (occurrence: None)
  Receive Date: 20110318
  Receipt Date: 20110311
  Transmission Date: 20110831
  Serious: Yes (Death, Life-Threatening, Hospitalization, Disabling)
  Sender: FDA-Public Use
  Company Number: A0913791A

PATIENT
  Age: 55 Year
  Sex: Male
  Weight: 78.2 kg

DRUGS (4)
  1. ETOPOSIDE [Concomitant]
  2. CISPLATIN [Concomitant]
  3. ARIXTRA [Suspect]
     Dosage: 7.5MG PER DAY
     Route: 058
     Dates: start: 20110126, end: 20110131
  4. ALOXI [Concomitant]

REACTIONS (5)
  - EXSANGUINATION [None]
  - HAEMOPTYSIS [None]
  - OESOPHAGEAL VARICES HAEMORRHAGE [None]
  - HAEMORRHAGE [None]
  - UPPER GASTROINTESTINAL HAEMORRHAGE [None]
